FAERS Safety Report 8317529-6 (Version None)
Quarter: 2012Q2

REPORT INFORMATION
  Report Type: 
  Country: None (occurrence: None)
  Receive Date: 20120427
  Receipt Date: 20120423
  Transmission Date: 20120825
  Serious: Yes (Other)
  Sender: FDA-Public Use
  Company Number: US-PFIZER INC-2012091660

PATIENT
  Sex: Male
  Weight: 78.9 kg

DRUGS (11)
  1. GABAPENTIN [Suspect]
     Indication: NEURALGIA
     Dosage: 400 MG, 3X/DAY
     Route: 048
     Dates: start: 20110401, end: 20110501
  2. OXYCODONE [Concomitant]
     Dosage: UNK, 3X/DAY
  3. GABAPENTIN [Suspect]
     Indication: BURNING SENSATION
     Dosage: 600 MG, 3X/DAY
     Route: 048
     Dates: start: 20110501, end: 20110501
  4. LYRICA [Suspect]
     Indication: NEUROPATHY PERIPHERAL
     Dosage: 75 MG, 3X/DAY
     Route: 048
     Dates: start: 20111211, end: 20120201
  5. LYRICA [Suspect]
     Indication: BURNING SENSATION
  6. GABAPENTIN [Suspect]
     Dosage: 800 MG, 3X/DAY
     Route: 048
     Dates: start: 20110501, end: 20110501
  7. GABAPENTIN [Suspect]
     Dosage: 300 MG, 3X/DAY
     Route: 048
     Dates: start: 20110501, end: 20111211
  8. LYRICA [Suspect]
     Indication: NEURALGIA
  9. ACETYLSALICYLIC ACID [Concomitant]
     Dosage: 325 MG, UNK
  10. GABAPENTIN [Suspect]
     Indication: NEUROPATHY PERIPHERAL
     Dosage: 300 MG, 3X/DAY
     Route: 048
     Dates: start: 20110201, end: 20110401
  11. KLONOPIN [Concomitant]
     Dosage: 1 MG, 3X/DAY

REACTIONS (8)
  - ABNORMAL BEHAVIOUR [None]
  - PARANOIA [None]
  - FEELING ABNORMAL [None]
  - PAIN [None]
  - DRUG INTOLERANCE [None]
  - MENTAL IMPAIRMENT [None]
  - BACK PAIN [None]
  - DRUG INEFFECTIVE [None]
